FAERS Safety Report 23698029 (Version 1)
Quarter: 2024Q2

REPORT INFORMATION
  Report Type: Spontaneous
  Country: US (occurrence: US)
  Receive Date: 20240402
  Receipt Date: 20240402
  Transmission Date: 20240716
  Serious: No
  Sender: FDA-Public Use
  Company Number: US-ALKERMES INC.-ALK-2024-000782

PATIENT
  Sex: Female

DRUGS (1)
  1. LYBALVI [Suspect]
     Active Substance: OLANZAPINE\SAMIDORPHAN L-MALATE
     Indication: Product used for unknown indication
     Dosage: UNK MILLIGRAM, QD
     Route: 048

REACTIONS (5)
  - Wrong technique in product usage process [Unknown]
  - Mood swings [Unknown]
  - Decreased appetite [Unknown]
  - Anger [Unknown]
  - Sedation [Unknown]
